FAERS Safety Report 4955543-9 (Version None)
Quarter: 2006Q1

REPORT INFORMATION
  Report Type: 
  Country: None (occurrence: None)
  Receive Date: 20060328
  Receipt Date: 20060320
  Transmission Date: 20060701
  Serious: Yes (Hospitalization)
  Sender: FDA-Public Use
  Company Number: GB-GLAXOSMITHKLINE-B0416364A

PATIENT

DRUGS (1)
  1. NYTOL ONE A NIGHT CAPLETS 50MG [Suspect]
     Route: 048

REACTIONS (1)
  - DRUG ABUSER [None]
